FAERS Safety Report 25463114 (Version 3)
Quarter: 2025Q2

REPORT INFORMATION
  Report Type: Spontaneous
  Country: RU (occurrence: RU)
  Receive Date: 20250620
  Receipt Date: 20250630
  Transmission Date: 20250716
  Serious: Yes (Life-Threatening, Hospitalization, Other)
  Sender: PFIZER
  Company Number: RU-MLMSERVICE-20250612-PI536494-00218-1

PATIENT
  Age: 34 Year
  Sex: Female

DRUGS (50)
  1. CYTARABINE [Suspect]
     Active Substance: CYTARABINE
     Indication: Central nervous system leukaemia
     Route: 037
     Dates: start: 202309
  2. CYTARABINE [Suspect]
     Active Substance: CYTARABINE
     Indication: Chemotherapy
  3. ETOPOSIDE [Suspect]
     Active Substance: ETOPOSIDE
     Indication: Plasmablastic lymphoma
     Dates: start: 20230923, end: 20230927
  4. ETOPOSIDE [Suspect]
     Active Substance: ETOPOSIDE
     Indication: Metastases to lymph nodes
  5. ETOPOSIDE [Suspect]
     Active Substance: ETOPOSIDE
     Indication: Metastases to thyroid
  6. ETOPOSIDE [Suspect]
     Active Substance: ETOPOSIDE
     Indication: Metastases to pancreas
  7. ETOPOSIDE [Suspect]
     Active Substance: ETOPOSIDE
     Indication: Metastases to heart
  8. ETOPOSIDE [Suspect]
     Active Substance: ETOPOSIDE
     Indication: Metastases to bone
  9. ETOPOSIDE [Suspect]
     Active Substance: ETOPOSIDE
     Indication: Metastases to central nervous system
  10. ETOPOSIDE [Suspect]
     Active Substance: ETOPOSIDE
     Indication: Diffuse large B-cell lymphoma stage IV
  11. VINCRISTINE [Suspect]
     Active Substance: VINCRISTINE
     Indication: Plasmablastic lymphoma
     Dates: start: 20230923, end: 20230927
  12. VINCRISTINE [Suspect]
     Active Substance: VINCRISTINE
     Indication: Metastases to lymph nodes
  13. VINCRISTINE [Suspect]
     Active Substance: VINCRISTINE
     Indication: Metastases to kidney
  14. VINCRISTINE [Suspect]
     Active Substance: VINCRISTINE
     Indication: Metastases to thyroid
  15. VINCRISTINE [Suspect]
     Active Substance: VINCRISTINE
     Indication: Metastases to pancreas
  16. VINCRISTINE [Suspect]
     Active Substance: VINCRISTINE
     Indication: Metastases to heart
  17. VINCRISTINE [Suspect]
     Active Substance: VINCRISTINE
     Indication: Metastases to bone
  18. VINCRISTINE [Suspect]
     Active Substance: VINCRISTINE
     Indication: Metastases to central nervous system
  19. VINCRISTINE [Suspect]
     Active Substance: VINCRISTINE
     Indication: Diffuse large B-cell lymphoma stage IV
  20. CYCLOPHOSPHAMIDE [Suspect]
     Active Substance: CYCLOPHOSPHAMIDE
     Indication: Plasmablastic lymphoma
     Dates: start: 20230923, end: 20230927
  21. CYCLOPHOSPHAMIDE [Suspect]
     Active Substance: CYCLOPHOSPHAMIDE
     Indication: Metastases to lymph nodes
  22. CYCLOPHOSPHAMIDE [Suspect]
     Active Substance: CYCLOPHOSPHAMIDE
     Indication: Metastases to kidney
  23. CYCLOPHOSPHAMIDE [Suspect]
     Active Substance: CYCLOPHOSPHAMIDE
     Indication: Metastases to thyroid
  24. CYCLOPHOSPHAMIDE [Suspect]
     Active Substance: CYCLOPHOSPHAMIDE
     Indication: Metastases to pancreas
  25. CYCLOPHOSPHAMIDE [Suspect]
     Active Substance: CYCLOPHOSPHAMIDE
     Indication: Metastases to heart
  26. CYCLOPHOSPHAMIDE [Suspect]
     Active Substance: CYCLOPHOSPHAMIDE
     Indication: Metastases to bone
  27. CYCLOPHOSPHAMIDE [Suspect]
     Active Substance: CYCLOPHOSPHAMIDE
     Indication: Metastases to central nervous system
  28. CYCLOPHOSPHAMIDE [Suspect]
     Active Substance: CYCLOPHOSPHAMIDE
     Indication: Diffuse large B-cell lymphoma stage IV
  29. DOXORUBICIN [Suspect]
     Active Substance: DOXORUBICIN
     Indication: Plasmablastic lymphoma
     Dates: start: 20230923, end: 20230927
  30. DOXORUBICIN [Suspect]
     Active Substance: DOXORUBICIN
     Indication: Metastases to kidney
  31. DOXORUBICIN [Suspect]
     Active Substance: DOXORUBICIN
     Indication: Metastases to lymph nodes
  32. DOXORUBICIN [Suspect]
     Active Substance: DOXORUBICIN
     Indication: Metastases to thyroid
  33. DOXORUBICIN [Suspect]
     Active Substance: DOXORUBICIN
     Indication: Metastases to pancreas
  34. DOXORUBICIN [Suspect]
     Active Substance: DOXORUBICIN
     Indication: Metastases to heart
  35. DOXORUBICIN [Suspect]
     Active Substance: DOXORUBICIN
     Indication: Metastases to bone
  36. DOXORUBICIN [Suspect]
     Active Substance: DOXORUBICIN
     Indication: Metastases to central nervous system
  37. DOXORUBICIN [Suspect]
     Active Substance: DOXORUBICIN
     Indication: Diffuse large B-cell lymphoma stage IV
  38. PREDNISONE [Suspect]
     Active Substance: PREDNISONE
     Indication: Plasmablastic lymphoma
     Dates: start: 20230923, end: 20230927
  39. PREDNISONE [Suspect]
     Active Substance: PREDNISONE
     Indication: Metastases to lymph nodes
  40. PREDNISONE [Suspect]
     Active Substance: PREDNISONE
     Indication: Metastases to kidney
  41. PREDNISONE [Suspect]
     Active Substance: PREDNISONE
     Indication: Metastases to thyroid
  42. PREDNISONE [Suspect]
     Active Substance: PREDNISONE
     Indication: Metastases to pancreas
  43. PREDNISONE [Suspect]
     Active Substance: PREDNISONE
     Indication: Metastases to heart
  44. PREDNISONE [Suspect]
     Active Substance: PREDNISONE
     Indication: Metastases to bone
  45. PREDNISONE [Suspect]
     Active Substance: PREDNISONE
     Indication: Metastases to central nervous system
  46. PREDNISONE [Suspect]
     Active Substance: PREDNISONE
     Indication: Diffuse large B-cell lymphoma stage IV
  47. METHOTREXATE [Suspect]
     Active Substance: METHOTREXATE
     Indication: Central nervous system leukaemia
     Route: 037
     Dates: start: 202309
  48. METHOTREXATE [Suspect]
     Active Substance: METHOTREXATE
     Indication: Chemotherapy
  49. DEXAMETHASONE [Suspect]
     Active Substance: DEXAMETHASONE
     Indication: Central nervous system leukaemia
     Route: 037
     Dates: start: 202309
  50. DEXAMETHASONE [Suspect]
     Active Substance: DEXAMETHASONE
     Indication: Chemotherapy

REACTIONS (11)
  - Febrile neutropenia [Unknown]
  - Granulocytopenia [Not Recovered/Not Resolved]
  - Posterior reversible encephalopathy syndrome [Recovered/Resolved]
  - Osmotic demyelination syndrome [Recovered/Resolved]
  - Oesophagitis ulcerative [Unknown]
  - Diabetes insipidus [Unknown]
  - Cytotoxic lesions of corpus callosum [Recovered/Resolved]
  - Hypotension [Unknown]
  - Enterocolitis [Unknown]
  - Thrombocytopenia [Not Recovered/Not Resolved]
  - Anaemia [Not Recovered/Not Resolved]

NARRATIVE: CASE EVENT DATE: 20231001
